FAERS Safety Report 6320110-1 (Version None)
Quarter: 2009Q3

REPORT INFORMATION
  Report Type: 
  Country: None (occurrence: None)
  Receive Date: 20090822
  Receipt Date: 20081022
  Transmission Date: 20100115
  Serious: No
  Sender: FDA-Public Use
  Company Number: US-ABBOTT-08P-163-0482638-00

PATIENT
  Sex: Male
  Weight: 74.91 kg

DRUGS (16)
  1. NIASPAN [Suspect]
     Indication: BLOOD CHOLESTEROL INCREASED
     Dosage: AT BEDTIME AT BEDTIME
     Route: 048
     Dates: start: 20081013
  2. WARFARIN SODIUM [Concomitant]
     Indication: ANTICOAGULANT THERAPY
     Dosage: VARIES
     Route: 048
  3. TRAMADOL [Concomitant]
     Indication: ARTHRALGIA
     Route: 048
  4. ATENOLOL [Concomitant]
     Indication: CARDIAC DISORDER
     Route: 048
  5. NEBUMETONE [Concomitant]
     Indication: ARTHRALGIA
     Route: 048
  6. PANTOPRAZOLE SODIUM [Concomitant]
     Indication: GASTRIC DISORDER
     Route: 048
  7. INEGY [Concomitant]
     Indication: BLOOD TRIGLYCERIDES
     Route: 048
  8. INEGY [Concomitant]
     Indication: BLOOD CHOLESTEROL
  9. ZOLPIDEM TARTRATE [Concomitant]
     Indication: INSOMNIA
     Dosage: HS PRN
     Route: 048
  10. NIFEDIPINE [Concomitant]
     Indication: BLOOD PRESSURE
     Route: 048
  11. POTASSIUM CHLORIDE [Concomitant]
     Indication: MINERAL SUPPLEMENTATION
     Route: 048
  12. FUROSEMIDE [Concomitant]
     Indication: DIURETIC THERAPY
     Route: 048
  13. ASPIRIN [Concomitant]
     Indication: DRUG USE FOR UNKNOWN INDICATION
     Route: 048
  14. MORNIFLUMATE [Concomitant]
     Indication: BLADDER DISORDER
     Route: 048
  15. MURO 128 [Concomitant]
     Indication: FUCHS' SYNDROME
     Dosage: 5 % HS OU
  16. FEXOFENADINE [Concomitant]
     Indication: SEASONAL ALLERGY
     Dosage: DAILY PRN
     Route: 048

REACTIONS (3)
  - FEELING HOT [None]
  - FLUSHING [None]
  - SUNBURN [None]
